FAERS Safety Report 17889819 (Version 1)
Quarter: 2020Q2

REPORT INFORMATION
  Report Type: Spontaneous
  Country: US (occurrence: US)
  Receive Date: 20200612
  Receipt Date: 20200612
  Transmission Date: 20200714
  Serious: Yes (Disabling)
  Sender: FDA-Public Use
  Company Number: None

PATIENT
  Age: 52 Year
  Sex: Female
  Weight: 103.5 kg

DRUGS (1)
  1. LEVOTHYROXINE. [Suspect]
     Active Substance: LEVOTHYROXINE
     Indication: HYPOTHYROIDISM
     Dosage: ?          QUANTITY:120 TABLET(S);?
     Route: 048
     Dates: start: 20200529, end: 20200611

REACTIONS (13)
  - Weight increased [None]
  - Dyspnoea [None]
  - Fatigue [None]
  - Tendon disorder [None]
  - Tendonitis [None]
  - Asthenia [None]
  - Product substitution issue [None]
  - Heart rate decreased [None]
  - Muscular weakness [None]
  - Drug intolerance [None]
  - Fluid retention [None]
  - Oedema [None]
  - Unevaluable event [None]

NARRATIVE: CASE EVENT DATE: 20200529
